FAERS Safety Report 20460398 (Version 2)
Quarter: 2022Q1

REPORT INFORMATION
  Report Type: Spontaneous
  Country: US (occurrence: US)
  Receive Date: 20220211
  Receipt Date: 20220223
  Transmission Date: 20220423
  Serious: Yes (Death, Other)
  Sender: FDA-Public Use
  Company Number: US-BIOVITRUM-2022US02143

PATIENT
  Sex: Male

DRUGS (16)
  1. GAMIFANT [Suspect]
     Active Substance: EMAPALUMAB-LZSG
     Indication: Haemophagocytic lymphohistiocytosis
     Dates: start: 20220124
  2. TPN AND INTRALIPID [Concomitant]
  3. LISINOPRIL [Concomitant]
     Active Substance: LISINOPRIL
  4. VANCOMYCIN [Concomitant]
     Active Substance: VANCOMYCIN
  5. CEFEPIME [Concomitant]
     Active Substance: CEFEPIME HYDROCHLORIDE
  6. VITAMIN K [Concomitant]
     Active Substance: PHYTONADIONE
  7. FILGRASTIM [Concomitant]
     Active Substance: FILGRASTIM
  8. ACETAMINOPHEN [Concomitant]
     Active Substance: ACETAMINOPHEN
  9. ACYCLOVIR [Concomitant]
     Active Substance: ACYCLOVIR
  10. ALLOPURINOL [Concomitant]
     Active Substance: ALLOPURINOL
  11. CALCIUM CARBONATE [Concomitant]
     Active Substance: CALCIUM CARBONATE
  12. DEXAMETHASONE [Concomitant]
     Active Substance: DEXAMETHASONE
  13. MELATONIN [Concomitant]
     Active Substance: MELATONIN
  14. VENETOCLAX [Concomitant]
     Active Substance: VENETOCLAX
  15. FAMOTIDINE [Concomitant]
     Active Substance: FAMOTIDINE
  16. ISRADAPINE [Concomitant]

REACTIONS (1)
  - Death [Fatal]

NARRATIVE: CASE EVENT DATE: 20220203
